FAERS Safety Report 16635610 (Version 2)
Quarter: 2019Q3

REPORT INFORMATION
  Report Type: Spontaneous
  Country: US (occurrence: US)
  Receive Date: 20190726
  Receipt Date: 20190911
  Transmission Date: 20191004
  Serious: Yes (Other)
  Sender: FDA-Public Use
  Company Number: US-INDIVIOR INC.-INDV-120734-2019

PATIENT
  Age: 42 Year
  Sex: Male

DRUGS (5)
  1. SUBOXONE [Suspect]
     Active Substance: BUPRENORPHINE HYDROCHLORIDE\NALOXONE HYDROCHLORIDE
     Indication: DRUG DEPENDENCE
     Dosage: TWO 8 MILLIGRAM FILMS DAILY
     Route: 060
  2. SUBOXONE [Suspect]
     Active Substance: BUPRENORPHINE HYDROCHLORIDE\NALOXONE HYDROCHLORIDE
     Dosage: 8 MILLIGRAM, BID
     Route: 060
     Dates: start: 201907
  3. SUBLOCADE [Suspect]
     Active Substance: BUPRENORPHINE
     Indication: DRUG DEPENDENCE
     Dosage: 300 MILLIGRAM, QMO (TWO INJECTIONS)
     Route: 058
     Dates: start: 201905, end: 201906
  4. SUBOXONE [Suspect]
     Active Substance: BUPRENORPHINE HYDROCHLORIDE\NALOXONE HYDROCHLORIDE
     Dosage: ONE 8MG FILM DAILY
     Route: 060
     Dates: start: 2019, end: 2019
  5. SUBOXONE [Suspect]
     Active Substance: BUPRENORPHINE HYDROCHLORIDE\NALOXONE HYDROCHLORIDE
     Indication: DRUG WITHDRAWAL SYNDROME
     Dosage: HALF OF 8 MG FILM DAILY
     Route: 060
     Dates: start: 2019, end: 2019

REACTIONS (13)
  - Bone pain [Recovered/Resolved]
  - Inappropriate schedule of product administration [Not Recovered/Not Resolved]
  - Foot fracture [Unknown]
  - Yawning [Recovered/Resolved]
  - Fatigue [Recovered/Resolved]
  - Intentional underdose [Recovered/Resolved]
  - Cystitis [Unknown]
  - Wrong technique in product usage process [Recovered/Resolved]
  - Fall [Recovered/Resolved]
  - Drug withdrawal syndrome [Recovered/Resolved]
  - Intentional product use issue [Recovered/Resolved]
  - Constipation [Recovered/Resolved]
  - Therapeutic product effect incomplete [Recovered/Resolved]

NARRATIVE: CASE EVENT DATE: 2019
